FAERS Safety Report 17313766 (Version 5)
Quarter: 2021Q4

REPORT INFORMATION
  Report Type: Spontaneous
  Country: US (occurrence: US)
  Receive Date: 20200124
  Receipt Date: 20211020
  Transmission Date: 20220303
  Serious: Yes (Other)
  Sender: FDA-Public Use
  Company Number: US-GILEAD-2020-0448029

PATIENT
  Age: 44 Year
  Sex: Male
  Weight: 230 kg

DRUGS (59)
  1. STRIBILD [Suspect]
     Active Substance: COBICISTAT\ELVITEGRAVIR\EMTRICITABINE\TENOFOVIR DISOPROXIL FUMARATE
     Indication: HIV infection
     Dosage: 1 DOSAGE FORM, QD
     Route: 048
     Dates: start: 201310, end: 2018
  2. STRIBILD [Suspect]
     Active Substance: COBICISTAT\ELVITEGRAVIR\EMTRICITABINE\TENOFOVIR DISOPROXIL FUMARATE
     Dosage: UNK
     Route: 065
     Dates: start: 201110, end: 2018
  3. TRUVADA [Suspect]
     Active Substance: EMTRICITABINE\TENOFOVIR DISOPROXIL FUMARATE
     Indication: HIV infection
     Dosage: 1 DOSAGE FORM, QD
     Route: 048
     Dates: start: 201110, end: 201310
  4. ATRIPLA [Suspect]
     Active Substance: EFAVIRENZ\EMTRICITABINE\TENOFOVIR DISOPROXIL FUMARATE
     Indication: HIV infection
     Dosage: UNK
     Route: 048
     Dates: start: 2006, end: 201110
  5. VIREAD [Suspect]
     Active Substance: TENOFOVIR DISOPROXIL FUMARATE
     Indication: HIV infection
     Dosage: UNK
     Route: 065
  6. GENVOYA [Concomitant]
     Active Substance: COBICISTAT\ELVITEGRAVIR\EMTRICITABINE\TENOFOVIR ALAFENAMIDE FUMARATE
  7. BIKTARVY [Concomitant]
     Active Substance: BICTEGRAVIR SODIUM\EMTRICITABINE\TENOFOVIR ALAFENAMIDE FUMARATE
  8. CLINDAMYCIN [Concomitant]
     Active Substance: CLINDAMYCIN
  9. FAMOTIDINE [Concomitant]
     Active Substance: FAMOTIDINE
  10. AZITHROMYCIN ANHYDROUS [Concomitant]
     Active Substance: AZITHROMYCIN ANHYDROUS
  11. OXYCODONE [Concomitant]
     Active Substance: OXYCODONE
  12. POLYETHYLENE GLYCOLS [Concomitant]
     Active Substance: POLYETHYLENE GLYCOLS
  13. CONTOUR [ESOMEPRAZOLE SODIUM] [Concomitant]
  14. IMIQUIMOD [Concomitant]
     Active Substance: IMIQUIMOD
  15. NORTRIPTYLINE [Concomitant]
     Active Substance: NORTRIPTYLINE
  16. PROPRANOLOL [Concomitant]
     Active Substance: PROPRANOLOL HYDROCHLORIDE
  17. METFORMIN [Concomitant]
     Active Substance: METFORMIN HYDROCHLORIDE
  18. MORPHINE SULFATE [Concomitant]
     Active Substance: MORPHINE SULFATE
  19. NORVIR [Concomitant]
     Active Substance: RITONAVIR
  20. NICODERM CQ [Concomitant]
     Active Substance: NICOTINE
  21. ANDROGEL [Concomitant]
     Active Substance: TESTOSTERONE
  22. LAMOTRIGINE [Concomitant]
     Active Substance: LAMOTRIGINE
  23. MIRTAZAPINE [Concomitant]
     Active Substance: MIRTAZAPINE
  24. RISPERIDONE [Concomitant]
     Active Substance: RISPERIDONE
  25. FERROUS SULFATE [Concomitant]
     Active Substance: FERROUS SULFATE
  26. OMEPRAZOLE [Concomitant]
     Active Substance: OMEPRAZOLE
  27. CYMBALTA [Concomitant]
     Active Substance: DULOXETINE HYDROCHLORIDE
  28. DULOXETINE [Concomitant]
     Active Substance: DULOXETINE
  29. SUMATRIPTAN [Concomitant]
     Active Substance: SUMATRIPTAN
  30. MICROLET [ETHINYLESTRADIOL;GESTODENE] [Concomitant]
  31. HYDROXYZINE HYDROCHLORIDE [Concomitant]
     Active Substance: HYDROXYZINE HYDROCHLORIDE
  32. GENERLAC [Concomitant]
     Active Substance: LACTULOSE
  33. KADIAN [Concomitant]
     Active Substance: MORPHINE SULFATE
  34. VENTOLIN HFA [Concomitant]
     Active Substance: ALBUTEROL SULFATE
  35. FUROSEMIDE [Concomitant]
     Active Substance: FUROSEMIDE
  36. SPIRONOLACTONE [Concomitant]
     Active Substance: SPIRONOLACTONE
  37. TEMAZEPAM [Concomitant]
     Active Substance: TEMAZEPAM
  38. GLIPIZIDE [Concomitant]
     Active Substance: GLIPIZIDE
  39. LORAZEPAM [Concomitant]
     Active Substance: LORAZEPAM
  40. TRETINOIN [Concomitant]
     Active Substance: TRETINOIN
  41. SPIRIVA [Concomitant]
     Active Substance: TIOTROPIUM BROMIDE MONOHYDRATE
  42. FENTANYL [Concomitant]
     Active Substance: FENTANYL
  43. DAPSONE [Concomitant]
     Active Substance: DAPSONE
  44. VITAMIN D3 [Concomitant]
     Active Substance: CHOLECALCIFEROL
  45. PREZISTA [Concomitant]
     Active Substance: DARUNAVIR ETHANOLATE
  46. ACETAMINOPHEN [Concomitant]
     Active Substance: ACETAMINOPHEN
  47. AMOXICILLIN [Concomitant]
     Active Substance: AMOXICILLIN
  48. AMPICILLIN [Concomitant]
     Active Substance: AMPICILLIN
  49. ASPIRIN [Concomitant]
     Active Substance: ASPIRIN
  50. CORTISONE [Concomitant]
     Active Substance: CORTISONE
  51. INTERFERON ALFA NOS [Concomitant]
     Active Substance: INTERFERON ALFA-2A OR INTERFERON ALFA-2B
  52. PANTOPRAZOLE [Concomitant]
     Active Substance: PANTOPRAZOLE
  53. PENICILLIN [Concomitant]
     Active Substance: PENICILLIN
  54. CRIXIVAN [Concomitant]
     Active Substance: INDINAVIR SULFATE
  55. RETROVIR [Concomitant]
     Active Substance: ZIDOVUDINE
  56. REYATAZ [Concomitant]
     Active Substance: ATAZANAVIR SULFATE
  57. ALDACTONE [Concomitant]
     Active Substance: SPIRONOLACTONE
  58. FLEET LAXATIVE [Concomitant]
  59. FLUOXETINE [Concomitant]
     Active Substance: FLUOXETINE HYDROCHLORIDE

REACTIONS (11)
  - Multiple fractures [Not Recovered/Not Resolved]
  - Osteoporosis [Not Recovered/Not Resolved]
  - Osteopenia [Not Recovered/Not Resolved]
  - Renal disorder [Unknown]
  - Renal impairment [Not Recovered/Not Resolved]
  - Bone density decreased [Unknown]
  - Emotional distress [Unknown]
  - Anhedonia [Unknown]
  - Economic problem [Unknown]
  - Anxiety [Unknown]
  - Pain [Unknown]

NARRATIVE: CASE EVENT DATE: 20181101
